FAERS Safety Report 9376093 (Version 1)
Quarter: 2013Q3

REPORT INFORMATION
  Report Type: Spontaneous
  Country: FI (occurrence: FI)
  Receive Date: 20130701
  Receipt Date: 20130701
  Transmission Date: 20140515
  Serious: Yes (Hospitalization)
  Sender: FDA-Public Use
  Company Number: FI-ROCHE-1228136

PATIENT
  Age: 63 Year
  Sex: Female

DRUGS (4)
  1. ZELBORAF [Suspect]
     Indication: METASTATIC MALIGNANT MELANOMA
     Route: 065
  2. ZELBORAF [Suspect]
     Route: 065
     Dates: end: 20130610
  3. ZELBORAF [Suspect]
     Route: 065
     Dates: start: 20130613, end: 20130618
  4. KEFEXIN [Suspect]
     Indication: INFECTION PROPHYLAXIS
     Dosage: DAILY
     Route: 065

REACTIONS (7)
  - Rash [Not Recovered/Not Resolved]
  - Herpes zoster [Unknown]
  - Keratoacanthoma [Unknown]
  - Squamous cell carcinoma [Not Recovered/Not Resolved]
  - Papilloma [Not Recovered/Not Resolved]
  - Paraesthesia [Unknown]
  - Electric shock [Unknown]
